FAERS Safety Report 21979703 (Version 1)
Quarter: 2023Q1

REPORT INFORMATION
  Report Type: Spontaneous
  Country: US (occurrence: US)
  Receive Date: 20230210
  Receipt Date: 20230210
  Transmission Date: 20230418
  Serious: Yes (Death, Hospitalization)
  Sender: FDA-Public Use
  Company Number: US-BAUSCH-BL-2023-002146

PATIENT
  Age: 67 Year
  Sex: Female

DRUGS (8)
  1. LORAZEPAM [Suspect]
     Active Substance: LORAZEPAM
     Indication: Product used for unknown indication
     Dosage: INGESTION
     Route: 048
  2. LORAZEPAM [Suspect]
     Active Substance: LORAZEPAM
     Dosage: ASPIRATION
     Route: 055
  3. BUPROPION [Suspect]
     Active Substance: BUPROPION
     Indication: Product used for unknown indication
     Dosage: INGESTION
     Route: 048
  4. BUPROPION [Suspect]
     Active Substance: BUPROPION
     Dosage: ASPIRATION
     Route: 055
  5. OLANZAPINE [Suspect]
     Active Substance: OLANZAPINE
     Indication: Product used for unknown indication
     Dosage: INGESTION
     Route: 048
  6. OLANZAPINE [Suspect]
     Active Substance: OLANZAPINE
     Dosage: ASPIRATION
     Route: 055
  7. TRAZODONE [Suspect]
     Active Substance: TRAZODONE HYDROCHLORIDE
     Indication: Product used for unknown indication
     Dosage: INGESTION
     Route: 048
  8. TRAZODONE [Suspect]
     Active Substance: TRAZODONE HYDROCHLORIDE
     Dosage: ASPIRATION
     Route: 055

REACTIONS (3)
  - Death [Fatal]
  - Cardiac arrest [Unknown]
  - Respiratory arrest [Unknown]
